FAERS Safety Report 10040536 (Version 3)
Quarter: 2014Q2

REPORT INFORMATION
  Report Type: Spontaneous
  Country: CN (occurrence: CN)
  Receive Date: 20140327
  Receipt Date: 20140414
  Transmission Date: 20141212
  Serious: Yes (Life-Threatening, Hospitalization, Other)
  Sender: FDA-Public Use
  Company Number: CN-009507513-1403CHN011989

PATIENT
  Age: 64 Year
  Sex: Female
  Weight: 50 kg

DRUGS (2)
  1. SINGULAIR (LOCAL DIST) [Suspect]
     Indication: COUGH
     Dosage: 10 MG, QD
     Route: 048
     Dates: start: 20140217, end: 201402
  2. SINGULAIR (LOCAL DIST) [Suspect]
     Indication: ASTHMA
     Dosage: 10 MG, QD
     Route: 048
     Dates: start: 201402, end: 20140228

REACTIONS (3)
  - Drug-induced liver injury [Recovered/Resolved]
  - Off label use [Unknown]
  - Drug dose omission [Recovered/Resolved]
